FAERS Safety Report 24122266 (Version 2)
Quarter: 2024Q3

REPORT INFORMATION
  Report Type: Spontaneous
  Country: US (occurrence: US)
  Receive Date: 20240722
  Receipt Date: 20240920
  Transmission Date: 20241017
  Serious: No
  Sender: SANDOZ
  Company Number: US-SANDOZ-SDZ2024US067040

PATIENT
  Sex: Female

DRUGS (1)
  1. DUREZOL [Suspect]
     Active Substance: DIFLUPREDNATE
     Indication: Product used for unknown indication
     Dosage: 1 DROP IN EACH EYE ONCE DAILY
     Route: 047

REACTIONS (3)
  - Eye irritation [Unknown]
  - Expired product administered [Unknown]
  - Product expiration date issue [Unknown]
